FAERS Safety Report 22157882 (Version 6)
Quarter: 2025Q1

REPORT INFORMATION
  Report Type: Spontaneous
  Country: US (occurrence: US)
  Receive Date: 20230330
  Receipt Date: 20250116
  Transmission Date: 20250408
  Serious: No
  Sender: PFIZER
  Company Number: US-PFIZER INC-PV202300058307

PATIENT
  Age: 51 Year
  Sex: Female

DRUGS (14)
  1. IBRANCE [Suspect]
     Active Substance: PALBOCICLIB
     Indication: Breast cancer female
     Route: 048
     Dates: start: 20230117
  2. IBRANCE [Suspect]
     Active Substance: PALBOCICLIB
     Route: 048
     Dates: start: 20230908
  3. ACYCLOVIR [Concomitant]
     Active Substance: ACYCLOVIR
  4. CARBOPLATIN [Concomitant]
     Active Substance: CARBOPLATIN
  5. DOCETAXEL [Concomitant]
     Active Substance: DOCETAXEL
  6. FULVESTRANT [Concomitant]
     Active Substance: FULVESTRANT
  7. HERCEPTIN [Concomitant]
     Active Substance: TRASTUZUMAB
  8. ZOFRAN [Concomitant]
     Active Substance: ONDANSETRON HYDROCHLORIDE
  9. CALCIUM\VITAMIN D [Concomitant]
     Active Substance: CALCIUM\VITAMIN D
  10. ZOLEDRONIC [Concomitant]
     Active Substance: ZOLEDRONIC ACID
  11. BIMATOPROST [Concomitant]
     Active Substance: BIMATOPROST
  12. CALCIUM [Concomitant]
     Active Substance: CALCIUM
  13. DEPO-MEDROL [Concomitant]
     Active Substance: METHYLPREDNISOLONE ACETATE
  14. SULFAMETHOXAZOLE\TRIMETHOPRIM [Concomitant]
     Active Substance: SULFAMETHOXAZOLE\TRIMETHOPRIM

REACTIONS (2)
  - Stomatitis [Unknown]
  - Weight increased [Unknown]
